FAERS Safety Report 5844954-5 (Version None)
Quarter: 2008Q3

REPORT INFORMATION
  Report Type: 
  Country: None (occurrence: None)
  Receive Date: 20080812
  Receipt Date: 20080804
  Transmission Date: 20090109
  Serious: Yes (Death, Hospitalization)
  Sender: FDA-Public Use
  Company Number: TCI2008A00362

PATIENT
  Age: 62 Year
  Sex: Male

DRUGS (8)
  1. ACTOS [Suspect]
     Indication: DIABETES MELLITUS
     Dosage: 15 MG (15 MG,1 IN 1 D) , PER ORAL
     Route: 048
     Dates: end: 20080124
  2. BASEN OD TABLETS 0.3 (VOGLIBOSE) [Suspect]
     Indication: DIABETES MELLITUS
     Dosage: 0.9 MG (0.3 MG, 3 IN 1 D), PER ORAL
     Route: 048
     Dates: end: 20080124
  3. ITOROL (ISOSORRIDE MONONITRATE) [Concomitant]
  4. DILTIAZEM HYDROCHLORIDE [Concomitant]
  5. FAMOTIDINE [Concomitant]
  6. EAC (ACETYLSALICYLIC ACID, ASCORBIC ACID) [Concomitant]
  7. SLOW-K [Concomitant]
  8. WARFARIN (WARFARIN POTASSIUM) [Concomitant]

REACTIONS (13)
  - ARRHYTHMIA [None]
  - BLOOD PRESSURE DECREASED [None]
  - DILATATION VENTRICULAR [None]
  - HAEMATEMESIS [None]
  - HYPOGLYCAEMIC COMA [None]
  - HYPOMAGNESAEMIA [None]
  - HYPOVENTILATION [None]
  - METABOLIC ACIDOSIS [None]
  - MYDRIASIS [None]
  - PULMONARY CONGESTION [None]
  - PUPILLARY REFLEX IMPAIRED [None]
  - VENTRICULAR EXTRASYSTOLES [None]
  - VENTRICULAR TACHYCARDIA [None]
